FAERS Safety Report 4667474-2 (Version None)
Quarter: 2005Q2

REPORT INFORMATION
  Report Type: 
  Country: None (occurrence: None)
  Receive Date: 20050519
  Receipt Date: 20050519
  Transmission Date: 20051028
  Serious: Yes (Hospitalization)
  Sender: FDA-Public Use
  Company Number: None

PATIENT
  Age: 44 Year
  Sex: Male
  Weight: 114.3065 kg

DRUGS (1)
  1. TRAMADOL   50MG [Suspect]
     Indication: BACK PAIN
     Dosage: 50MG   TID   ORAL
     Route: 048
     Dates: start: 20030606, end: 20050516

REACTIONS (11)
  - ABDOMINAL PAIN [None]
  - ANXIETY [None]
  - CHEST DISCOMFORT [None]
  - DIZZINESS [None]
  - DYSPEPSIA [None]
  - DYSPNOEA [None]
  - EPIGASTRIC DISCOMFORT [None]
  - FLUSHING [None]
  - HYPERHIDROSIS [None]
  - NAUSEA [None]
  - VASODILATATION [None]
